FAERS Safety Report 4335730-3 (Version None)
Quarter: 2004Q1

REPORT INFORMATION
  Report Type: 
  Country: None (occurrence: None)
  Receive Date: 20040329
  Receipt Date: 20031120
  Transmission Date: 20041129
  Serious: No
  Sender: FDA-Public Use
  Company Number: USA031153110

PATIENT
  Age: 48 Year
  Sex: Female

DRUGS (4)
  1. STRATTERA [Suspect]
     Indication: ATTENTION DEFICIT/HYPERACTIVITY DISORDER
     Dosage: 25  MG/DAY
  2. EVISTA [Suspect]
     Indication: OSTEOPOROSIS
  3. MIACALCIN [Concomitant]
  4. XANAX [Concomitant]

REACTIONS (10)
  - DECREASED APPETITE [None]
  - DRY MOUTH [None]
  - FEELING JITTERY [None]
  - HYPERSENSITIVITY [None]
  - INSOMNIA [None]
  - NAUSEA [None]
  - OEDEMA PERIPHERAL [None]
  - PRURITUS [None]
  - RASH ERYTHEMATOUS [None]
  - RED MAN SYNDROME [None]
